FAERS Safety Report 4531137-4 (Version None)
Quarter: 2004Q4

REPORT INFORMATION
  Report Type: 
  Country: None (occurrence: None)
  Receive Date: 20041216
  Receipt Date: 20041203
  Transmission Date: 20050328
  Serious: Yes (Hospitalization)
  Sender: FDA-Public Use
  Company Number: 2004SE06741

PATIENT
  Age: 52 Year
  Sex: Female
  Weight: 42 kg

DRUGS (4)
  1. NEXIUM [Suspect]
     Indication: HIATUS HERNIA
     Dosage: 40 MG QD PO
     Route: 048
     Dates: start: 20040801, end: 20041008
  2. NEXIUM [Suspect]
     Indication: OESOPHAGITIS
     Dosage: 40 MG QD PO
     Route: 048
     Dates: start: 20040801, end: 20041008
  3. VASILIP [Concomitant]
  4. LEXAURIN [Concomitant]

REACTIONS (1)
  - ANAPHYLACTIC SHOCK [None]
